FAERS Safety Report 12766337 (Version 1)
Quarter: 2016Q3

REPORT INFORMATION
  Report Type: Spontaneous
  Country: US (occurrence: US)
  Receive Date: 20160921
  Receipt Date: 20160921
  Transmission Date: 20161109
  Serious: Yes (Hospitalization, Other)
  Sender: FDA-Public Use
  Company Number: US-B.I. PHARMACEUTICALS,INC./RIDGEFIELD-2016-BI-59905BP

PATIENT
  Age: 71 Year
  Sex: Female

DRUGS (1)
  1. COMBIVENT [Suspect]
     Active Substance: ALBUTEROL SULFATE\IPRATROPIUM BROMIDE
     Indication: CHRONIC OBSTRUCTIVE PULMONARY DISEASE
     Dosage: DOSE PER APPLICATION: 20MCG / 100MCG; DAILY DOSE: 80MCG / 400MCG; FORMULATION: INHALATION SPRAY
     Route: 055

REACTIONS (10)
  - Seizure [Recovered/Resolved]
  - Vein rupture [Not Recovered/Not Resolved]
  - Cerebrovascular accident [Not Recovered/Not Resolved]
  - Decreased appetite [Recovered/Resolved]
  - Vomiting [Recovered/Resolved]
  - Contusion [Not Recovered/Not Resolved]
  - Brain injury [Not Recovered/Not Resolved]
  - Respiratory arrest [Recovered/Resolved]
  - Dehydration [Recovered/Resolved]
  - Memory impairment [Not Recovered/Not Resolved]

NARRATIVE: CASE EVENT DATE: 201202
